FAERS Safety Report 6313891-4 (Version None)
Quarter: 2009Q3

REPORT INFORMATION
  Report Type: 
  Country: None (occurrence: None)
  Receive Date: 20090817
  Receipt Date: 20090817
  Transmission Date: 20100115
  Serious: Yes (Other)
  Sender: FDA-Public Use
  Company Number: None

PATIENT
  Age: 55 Year
  Sex: Female
  Weight: 59.8748 kg

DRUGS (1)
  1. BONIVA [Suspect]
     Indication: OSTEOPOROSIS
     Dosage: ONCE MONTHLY PO
     Route: 048
     Dates: start: 20090517, end: 20090717

REACTIONS (3)
  - ARTHRALGIA [None]
  - MUSCLE SPASMS [None]
  - MYALGIA [None]
